FAERS Safety Report 8530043-8 (Version None)
Quarter: 2012Q3

REPORT INFORMATION
  Report Type: 
  Country: None (occurrence: None)
  Receive Date: 20120711
  Receipt Date: 20120627
  Transmission Date: 20120928
  Serious: Yes (Hospitalization)
  Sender: FDA-Public Use
  Company Number: TPA2011A03664

PATIENT
  Age: 35 Year
  Sex: Female

DRUGS (2)
  1. ULORIC [Suspect]
     Indication: GOUT
     Dosage: 40 MG, 1 IN 1 D, PER ORAL
     Route: 048
  2. UNKNOWN DIABETES MEDICATIONS (DRUG USED IN DIABETES) [Concomitant]

REACTIONS (2)
  - RENAL FAILURE ACUTE [None]
  - HEPATIC FAILURE [None]
